FAERS Safety Report 7743805-1 (Version None)
Quarter: 2011Q3

REPORT INFORMATION
  Report Type: 
  Country: None (occurrence: None)
  Receive Date: 20110912
  Receipt Date: 20110907
  Transmission Date: 20111222
  Serious: Yes (Hospitalization)
  Sender: FDA-Public Use
  Company Number: US-GLAXOSMITHKLINE-A0890324A

PATIENT
  Sex: Male
  Weight: 115.9 kg

DRUGS (8)
  1. AVANDIA [Suspect]
     Indication: DIABETES MELLITUS
     Dosage: 2MG TWICE PER DAY
     Route: 048
     Dates: start: 20050101, end: 20080701
  2. GEMFIBROZIL [Concomitant]
  3. NORVASC [Concomitant]
  4. TRICOR [Concomitant]
  5. LIPITOR [Concomitant]
  6. INSULIN [Concomitant]
  7. ACCUPRIL [Concomitant]
  8. ALLOPURINOL [Concomitant]

REACTIONS (3)
  - CARDIAC FAILURE [None]
  - CARDIOVASCULAR DISORDER [None]
  - CEREBROVASCULAR ACCIDENT [None]
